FAERS Safety Report 12218841 (Version 1)
Quarter: 2016Q1

REPORT INFORMATION
  Report Type: Spontaneous
  Country: CN (occurrence: CN)
  Receive Date: 20160329
  Receipt Date: 20160329
  Transmission Date: 20160526
  Serious: Yes (Hospitalization)
  Sender: FDA-Public Use
  Company Number: CN-MYLANLABS-2016M1012996

PATIENT

DRUGS (1)
  1. DICLOFENAC [Suspect]
     Active Substance: DICLOFENAC
     Indication: OSTEOARTHROPATHY
     Route: 065

REACTIONS (5)
  - Gastric ulcer [Unknown]
  - Gastric fistula [Unknown]
  - Gastrointestinal haemorrhage [Unknown]
  - Drug abuse [Unknown]
  - Fistula of small intestine [Unknown]
